FAERS Safety Report 8076649-4 (Version None)
Quarter: 2012Q1

REPORT INFORMATION
  Report Type: 
  Country: None (occurrence: None)
  Receive Date: 20120127
  Receipt Date: 20120125
  Transmission Date: 20120608
  Serious: Yes (Death)
  Sender: FDA-Public Use
  Company Number: PHHY2012GB006807

PATIENT
  Age: 61 Year

DRUGS (2)
  1. ETOPOSIDE [Suspect]
     Indication: SEMINOMA
  2. CARBOPLATIN [Suspect]
     Indication: SEMINOMA
     Route: 048

REACTIONS (2)
  - DEATH [None]
  - VOMITING [None]
